FAERS Safety Report 24849976 (Version 1)
Quarter: 2025Q1

REPORT INFORMATION
  Report Type: Spontaneous
  Country: US (occurrence: None)
  Receive Date: 20250116
  Receipt Date: 20250116
  Transmission Date: 20250409
  Serious: Yes (Other)
  Sender: FDA-CTU
  Company Number: None

PATIENT
  Age: 23 Year
  Sex: Female

DRUGS (10)
  1. XOLAIR [Suspect]
     Active Substance: OMALIZUMAB
     Dosage: FREQUENCY : MONTHLY;?
     Route: 058
     Dates: start: 20241106
  2. ADRENAL C [Concomitant]
  3. ALBUTEROL AER HFA [Concomitant]
  4. CLARISCAN [Concomitant]
     Active Substance: GADOTERATE MEGLUMINE
  5. DIAZEPAM [Concomitant]
     Active Substance: DIAZEPAM
  6. FLUOCINONIDE SOL 0.05% [Concomitant]
  7. FLUVOXAMINE [Concomitant]
     Active Substance: FLUVOXAMINE
  8. GLUTAMINE [Concomitant]
     Active Substance: GLUTAMINE
  9. HYDROCORT CRE 2.5% [Concomitant]
  10. HYDROXYZINE HYDROCHLORIDE [Concomitant]
     Active Substance: HYDROXYZINE HYDROCHLORIDE

REACTIONS (1)
  - Anaesthesia procedure [None]

NARRATIVE: CASE EVENT DATE: 20250106
